FAERS Safety Report 15947856 (Version 4)
Quarter: 2019Q1

REPORT INFORMATION
  Report Type: Report from Study
  Country: US (occurrence: US)
  Receive Date: 20190212
  Receipt Date: 20190321
  Transmission Date: 20190417
  Serious: Yes (Life-Threatening, Hospitalization, Other)
  Sender: FDA-Public Use
  Company Number: US-VELOXIS PHARMACEUTICALS, INC.-2019VELUS1391

PATIENT
  Age: 66 Year
  Sex: Female
  Weight: 89.9 kg

DRUGS (32)
  1. COLLAGENASE SANTYL [Concomitant]
     Active Substance: COLLAGENASE CLOSTRIDIUM HISTOLYTICUM
     Indication: PRODUCT USED FOR UNKNOWN INDICATION
     Dosage: USE AS DIRECTED
  2. COLACE [Concomitant]
     Active Substance: DOCUSATE SODIUM
     Indication: PRODUCT USED FOR UNKNOWN INDICATION
     Dosage: 100 MG, BID
     Route: 048
  3. PEPCID [Concomitant]
     Active Substance: FAMOTIDINE
     Indication: PRODUCT USED FOR UNKNOWN INDICATION
     Dosage: 20 MG, QD
     Route: 048
  4. ENVARSUS XR [Suspect]
     Active Substance: TACROLIMUS
     Dosage: 7 MG, QD
     Route: 048
     Dates: start: 20190204, end: 20190205
  5. DEXTROSE. [Concomitant]
     Active Substance: DEXTROSE
     Indication: DIABETES MELLITUS
     Dosage: 25 ML, PRN
     Route: 042
  6. SINGULAIR [Concomitant]
     Active Substance: MONTELUKAST SODIUM
     Indication: PRODUCT USED FOR UNKNOWN INDICATION
     Dosage: 10 MG, QD
     Route: 048
  7. THERAGRAN                          /07504101/ [Concomitant]
     Indication: PRODUCT USED FOR UNKNOWN INDICATION
     Dosage: 1 DF, QD
     Route: 048
  8. VALCYTE [Concomitant]
     Active Substance: VALGANCICLOVIR HYDROCHLORIDE
     Indication: PRODUCT USED FOR UNKNOWN INDICATION
     Dosage: 9 ML, QD
     Route: 048
  9. GLUCAGEN                           /00157801/ [Concomitant]
     Indication: DIABETES MELLITUS
     Dosage: 1 MG, PRN
     Route: 030
  10. ZOFRAN [Concomitant]
     Active Substance: ONDANSETRON HYDROCHLORIDE
     Indication: NAUSEA
     Dosage: 4 MG, TID, AS NEEDED
     Route: 048
  11. MAG-OX [Concomitant]
     Active Substance: MAGNESIUM OXIDE
     Indication: PRODUCT USED FOR UNKNOWN INDICATION
     Dosage: 400 MG, BID
     Route: 048
  12. CELLCEPT [Concomitant]
     Active Substance: MYCOPHENOLATE MOFETIL\MYCOPHENOLATE MOFETIL HYDROCHLORIDE
     Indication: PRODUCT USED FOR UNKNOWN INDICATION
     Dosage: 5 ML, BID, SUSP EFFERV GRANULES FOR ORAL SUSP
     Route: 048
  13. DEXTROSE. [Concomitant]
     Active Substance: DEXTROSE
     Dosage: 50 ML, PRN
     Route: 042
  14. ROXICODONE [Concomitant]
     Active Substance: OXYCODONE HYDROCHLORIDE
     Dosage: 5 MG, Q4H, PRN
     Route: 048
  15. SENSIPAR [Concomitant]
     Active Substance: CINACALCET HYDROCHLORIDE
     Indication: PRODUCT USED FOR UNKNOWN INDICATION
     Dosage: 60 MG, QD
     Route: 048
  16. HUMALOG [Concomitant]
     Active Substance: INSULIN LISPRO
     Indication: PRODUCT USED FOR UNKNOWN INDICATION
     Dosage: 2-10 UNITS, TID
     Route: 058
  17. K PHOS NEUTRAL [Concomitant]
     Active Substance: POTASSIUM PHOSPHATE, MONOBASIC\SODIUM PHOSPHATE, DIBASIC, ANHYDROUS\SODIUM PHOSPHATE, MONOBASIC, MONOHYDRATE
     Indication: PRODUCT USED FOR UNKNOWN INDICATION
     Dosage: 2 DF, TID WITH MEAL
     Route: 048
  18. ENVARSUS XR [Suspect]
     Active Substance: TACROLIMUS
     Indication: RENAL TRANSPLANT
     Dosage: 10 MG, QD
     Route: 048
     Dates: start: 20190128
  19. ASPIRIN                            /00002701/ [Concomitant]
     Active Substance: ASPIRIN
     Indication: PRODUCT USED FOR UNKNOWN INDICATION
     Dosage: 81 MG, QD
     Route: 048
  20. PLAVIX [Concomitant]
     Active Substance: CLOPIDOGREL BISULFATE
     Indication: PRODUCT USED FOR UNKNOWN INDICATION
     Dosage: 75 MG, QD
     Route: 048
  21. SULFAMYLON [Concomitant]
     Active Substance: MAFENIDE ACETATE
     Indication: PRODUCT USED FOR UNKNOWN INDICATION
     Dosage: SEE WOUND DISCHARGE INSTRUCTIONS
  22. DULCOLAX (BISACODYL) [Concomitant]
     Active Substance: BISACODYL
     Indication: PRODUCT USED FOR UNKNOWN INDICATION
     Dosage: 5 MG, BID
     Route: 048
  23. CHLORPHENIRAMINE MALEATE. [Concomitant]
     Active Substance: CHLORPHENIRAMINE MALEATE
     Indication: PRODUCT USED FOR UNKNOWN INDICATION
     Dosage: 12 MG, BID
     Route: 048
  24. TOUJEO [Concomitant]
     Active Substance: INSULIN GLARGINE
     Indication: PRODUCT USED FOR UNKNOWN INDICATION
     Dosage: 25 UNITS AT BEDTIME
     Route: 058
  25. CRESTOR [Concomitant]
     Active Substance: ROSUVASTATIN CALCIUM
     Indication: PRODUCT USED FOR UNKNOWN INDICATION
     Dosage: 5 MG, QD, AT BED TIME
     Route: 048
  26. ENVARSUS XR [Suspect]
     Active Substance: TACROLIMUS
     Dosage: 5 MG, QD
     Route: 048
     Dates: start: 20190206, end: 20190207
  27. ROXICODONE [Concomitant]
     Active Substance: OXYCODONE HYDROCHLORIDE
     Indication: PAIN
     Dosage: 10 MG, Q4H, PRN
     Route: 048
  28. RESTORIL [Concomitant]
     Active Substance: TEMAZEPAM
     Indication: POOR QUALITY SLEEP
     Dosage: 15 MG, QHS, PRN
     Route: 048
  29. COREG [Concomitant]
     Active Substance: CARVEDILOL
     Indication: HYPERTENSION
     Dosage: 6.25 MG, BID
     Route: 048
     Dates: start: 20190204
  30. NEORAL [Concomitant]
     Active Substance: CYCLOSPORINE
     Indication: PRODUCT USED FOR UNKNOWN INDICATION
     Dosage: 1.5 ML, BID
     Route: 048
  31. CHLORASEPTIC SORE THROAT [Concomitant]
     Active Substance: PHENOL
     Indication: PRODUCT USED FOR UNKNOWN INDICATION
     Dosage: 1 SPRAY EVERY 2 HOURS AS NEEDED
     Route: 048
  32. BACTRIM [Concomitant]
     Active Substance: SULFAMETHOXAZOLE\TRIMETHOPRIM
     Indication: PRODUCT USED FOR UNKNOWN INDICATION
     Dosage: 10 ML, QD, SUSP EFFERV GRANULES FOR ORAL SUSP
     Route: 048

REACTIONS (12)
  - Incision site cellulitis [Recovering/Resolving]
  - Balance disorder [Unknown]
  - Coordination abnormal [Unknown]
  - Dysarthria [Unknown]
  - Mental status changes [Recovered/Resolved]
  - Gait disturbance [Unknown]
  - Motor dysfunction [Unknown]
  - Sensory disturbance [Unknown]
  - Asthenia [Unknown]
  - Hallucination [Unknown]
  - Agitation [Unknown]
  - Confusional state [Unknown]

NARRATIVE: CASE EVENT DATE: 20190204
